FAERS Safety Report 10036137 (Version 1)
Quarter: 2014Q1

REPORT INFORMATION
  Report Type: Spontaneous
  Country: US (occurrence: None)
  Receive Date: 20140306
  Receipt Date: 20140306
  Transmission Date: 20141002
  Serious: Yes (Other)
  Sender: FDA-Public Use
  Company Number: 163-21880-13121199

PATIENT
  Age: 74 Year
  Sex: Female
  Weight: 75.25 kg

DRUGS (22)
  1. REVLIMID (LENALIDOMIDE) (25 MILLIGRAM, CAPSULES) [Suspect]
     Indication: PLASMA CELL MYELOMA
     Dosage: 25 MG, 21 IN 28 D, PO
     Route: 048
     Dates: start: 20131111, end: 20131120
  2. PRILOSEC (OMEPRAZOLE) [Concomitant]
  3. VITAMIN B 12 (VITAMIN B 12) [Concomitant]
  4. BACTRIM (BACTRIM) [Concomitant]
  5. VITAMIN D (ERGOCALCIFEROL) [Concomitant]
  6. ZOMETA (ZOLEDRONIC ACID) [Concomitant]
  7. ARIMIDEX (ANASTROZOLE) [Concomitant]
  8. ASPIRIN [Concomitant]
  9. CALCIUM (CALCIUM) [Concomitant]
  10. CARVEDILOL (CARVEDILOL) [Concomitant]
  11. CLONIDINE (CLONIDINE) [Concomitant]
  12. DEXAMETHASONE (DEXAMETHASONE) [Concomitant]
  13. DYAZIDE (DYAZIDE) [Concomitant]
  14. FLUTICASONE (FLUTICASONE) [Concomitant]
  15. LOSARTAN (LOSARTAN) [Concomitant]
  16. MAGNESIUM (MAGNESIUM) [Concomitant]
  17. OMEGA 3 (FISH OIL) [Concomitant]
  18. PRAVACHOL (PRAVASTATIN SODIUM) [Concomitant]
  19. PROCHLORPERAZINE MALEATE (PROCHLORPERAZINE MALEATE) [Concomitant]
  20. VITAMIN B COMPLEX WITH C (BEMINAL WITH C FORTIS) [Concomitant]
  21. XANAX (ALPRAZOLAM) [Concomitant]
  22. ZOFRAN (ONDANSETRON HYDROCHLORIDE) [Concomitant]

REACTIONS (4)
  - Hypoaesthesia [None]
  - Asthenia [None]
  - Myopathy [None]
  - Fatigue [None]
